FAERS Safety Report 12631015 (Version 2)
Quarter: 2016Q3

REPORT INFORMATION
  Report Type: Spontaneous
  Country: US (occurrence: US)
  Receive Date: 20160808
  Receipt Date: 20160808
  Transmission Date: 20161109
  Serious: No
  Sender: FDA-Public Use
  Company Number: US-BEH-2015051857

PATIENT
  Sex: Female
  Weight: 104.1 kg

DRUGS (17)
  1. EPIPEN AUTOINJECTOR [Concomitant]
     Indication: ANAPHYLACTIC REACTION
     Dosage: 1 DOSE AS NEEDED
     Route: 030
  2. MULTIVITAMIN [Concomitant]
     Active Substance: VITAMINS
     Dosage: 1 TAB DAILY
     Route: 048
  3. ZEGERID [Concomitant]
     Active Substance: OMEPRAZOLE\SODIUM BICARBONATE
     Dosage: 20 MG -1.1 G CAPSULE
     Route: 048
  4. HIZENTRA [Suspect]
     Active Substance: HUMAN IMMUNOGLOBULIN G
     Route: 058
  5. CETIRIZINE [Concomitant]
     Active Substance: CETIRIZINE HYDROCHLORIDE
     Dosage: 1 TABLET DAILY
     Route: 048
  6. BIAXIN [Concomitant]
     Active Substance: CLARITHROMYCIN
     Dosage: 1000 MG DAILY
     Route: 048
  7. TYLENOL [Concomitant]
     Active Substance: ACETAMINOPHEN
     Dosage: 1 TAB TWO TIMES A DAY.
     Route: 048
  8. ACETAMINOPHEN. [Concomitant]
     Active Substance: ACETAMINOPHEN
     Dosage: 1 DOSE AS DIRECTED
     Route: 048
  9. NASONEX [Concomitant]
     Active Substance: MOMETASONE FUROATE
     Dosage: 50 MCG SPRAY/PUMP - 1 DOSE DAILY
     Route: 045
  10. BIOTIN [Concomitant]
     Active Substance: BIOTIN
     Dosage: 10000 IU DAILY
     Route: 048
  11. TYLENOL EXTRA STRENGTH [Concomitant]
     Active Substance: ACETAMINOPHEN
     Dosage: 1 DOSE AS DIRECTED
     Route: 048
  12. HIZENTRA [Suspect]
     Active Substance: HUMAN IMMUNOGLOBULIN G
     Indication: HYPER IGM SYNDROME
     Route: 058
  13. PROAIR HFA 90 MCG HFA AER AD [Concomitant]
  14. IBUPROFEN. [Concomitant]
     Active Substance: IBUPROFEN
  15. DIPHENHYDRAMINE. [Concomitant]
     Active Substance: DIPHENHYDRAMINE
     Dosage: 1 DOSE AS NEEDED
     Route: 048
  16. BENADRYL [Concomitant]
     Active Substance: DIPHENHYDRAMINE HYDROCHLORIDE
     Dosage: 1 DOSE AS NEEDED
     Route: 048
  17. FLAXSEED [Concomitant]
     Active Substance: FLAX SEED
     Dosage: 1 DOSE DAILY
     Route: 048

REACTIONS (3)
  - Administration site pruritus [Unknown]
  - Pyrexia [Unknown]
  - Rash [Unknown]
